FAERS Safety Report 18651451 (Version 1)
Quarter: 2020Q4

REPORT INFORMATION
  Report Type: Spontaneous
  Country: IT (occurrence: IT)
  Receive Date: 20201223
  Receipt Date: 20201223
  Transmission Date: 20210114
  Serious: Yes (Death, Other)
  Sender: FDA-Public Use
  Company Number: IT-SUN PHARMACEUTICAL INDUSTRIES LTD-2020RR-272341

PATIENT
  Sex: Female

DRUGS (9)
  1. CISPLATIN. [Suspect]
     Active Substance: CISPLATIN
     Indication: OVARIAN CANCER METASTATIC
     Dosage: UNK, 8 CYCLES
     Route: 065
     Dates: start: 201611, end: 201705
  2. CARBOPLATIN. [Suspect]
     Active Substance: CARBOPLATIN
     Indication: OVARIAN CANCER METASTATIC
     Dosage: UNK
     Route: 065
  3. PACLITAXEL. [Suspect]
     Active Substance: PACLITAXEL
     Indication: OVARIAN CANCER METASTATIC
     Dosage: 80 MILLIGRAM/SQ. METER, WEEKLY
     Route: 065
  4. DOXORUBICIN LIPOSOME [Suspect]
     Active Substance: DOXORUBICIN
     Indication: OVARIAN CANCER METASTATIC
     Dosage: 30 MILLIGRAM/SQ. METER, 2 CYCLES
     Route: 065
     Dates: start: 201803, end: 201805
  5. OLAPARIB. [Suspect]
     Active Substance: OLAPARIB
     Indication: OVARIAN CANCER METASTATIC
     Dosage: 300 MILLIGRAM, BID, 7 DAYS PER WEEK
     Route: 065
     Dates: start: 201810
  6. GEMCITABINE. [Suspect]
     Active Substance: GEMCITABINE
     Indication: OVARIAN CANCER METASTATIC
     Dosage: UNK, 8 CYCLES
     Route: 005
     Dates: start: 201611, end: 201705
  7. CISPLATIN. [Suspect]
     Active Substance: CISPLATIN
     Dosage: 20 MILLIGRAM/SQ. METER, WEEKLY
     Route: 065
  8. TOPOTECAN [Suspect]
     Active Substance: TOPOTECAN HYDROCHLORIDE
     Indication: OVARIAN CANCER METASTATIC
     Dosage: UNK, 3 CYCLES
     Route: 065
     Dates: start: 201806, end: 201808
  9. CEDIRANIB. [Suspect]
     Active Substance: CEDIRANIB
     Indication: OVARIAN CANCER METASTATIC
     Dosage: 20 MILLIGRAM, DAILY, 5 DAYS PER WEEK
     Route: 065
     Dates: start: 201810

REACTIONS (4)
  - Drug ineffective [Unknown]
  - General physical health deterioration [Unknown]
  - Rash maculo-papular [Unknown]
  - Disease progression [Unknown]
